FAERS Safety Report 8579289-3 (Version None)
Quarter: 2012Q3

REPORT INFORMATION
  Report Type: 
  Country: None (occurrence: None)
  Receive Date: 20120808
  Receipt Date: 20120802
  Transmission Date: 20120928
  Serious: Yes (Other)
  Sender: FDA-Public Use
  Company Number: AU-PFIZER INC-2011287178

PATIENT
  Sex: Male

DRUGS (2)
  1. EFFEXOR XR [Suspect]
     Indication: DEPRESSION
     Dosage: 75 MG, 1X/DAY
  2. EFFEXOR XR [Suspect]
     Dosage: 225 MG, 1X/DAY

REACTIONS (16)
  - IMPULSIVE BEHAVIOUR [None]
  - PARTNER STRESS [None]
  - ABDOMINAL PAIN UPPER [None]
  - DISINHIBITION [None]
  - NIGHT SWEATS [None]
  - PATHOLOGICAL GAMBLING [None]
  - MUSCLE TWITCHING [None]
  - CIRCUMSTANCE OR INFORMATION CAPABLE OF LEADING TO MEDICATION ERROR [None]
  - ALCOHOL USE [None]
  - EMOTIONAL DISORDER [None]
  - RESTLESS LEGS SYNDROME [None]
  - HYPERSEXUALITY [None]
  - HYPERTENSION [None]
  - APATHY [None]
  - TINNITUS [None]
  - ABNORMAL DREAMS [None]
